FAERS Safety Report 16393535 (Version 1)
Quarter: 2019Q3

REPORT INFORMATION
  Report Type: Spontaneous
  Country: US (occurrence: US)
  Receive Date: 20190603
  Receipt Date: 20190603
  Transmission Date: 20191004
  Serious: Yes (Disabling)
  Sender: FDA-Public Use
  Company Number: None

PATIENT
  Age: 47 Year
  Sex: Female
  Weight: 63 kg

DRUGS (9)
  1. DEXTROAMPHET SACCHARAT, AMPHET ASPARTATE, DEXTROAMPHET SULFATE AND AMPHET SULFAT [Suspect]
     Active Substance: AMPHETAMINE ASPARTATE\AMPHETAMINE SULFATE\DEXTROAMPHETAMINE SACCHARATE\DEXTROAMPHETAMINE SULFATE
     Indication: ATTENTION DEFICIT/HYPERACTIVITY DISORDER
     Dosage: ?          QUANTITY:1 TABLET(S);?
     Route: 048
     Dates: start: 20190521, end: 20190602
  2. VITAMIN C [Concomitant]
     Active Substance: ASCORBIC ACID
  3. PROPRANOLOL [Concomitant]
     Active Substance: PROPRANOLOL HYDROCHLORIDE
  4. SUMATRIPTON [Concomitant]
  5. ALPRAZOLAM. [Concomitant]
     Active Substance: ALPRAZOLAM
  6. IBUPROPHEN [Concomitant]
     Active Substance: IBUPROFEN
  7. CYMBALTA [Concomitant]
     Active Substance: DULOXETINE HYDROCHLORIDE
  8. MULTI-VITAMIN [Concomitant]
     Active Substance: .ALPHA.-TOCOPHEROL ACETATE, DL-\ASCORBIC ACID\CYANOCOBALAMIN\FLUORIDE ION\FOLIC ACID\NIACIN\PYRIDOXINE\RIBOFLAVIN\THIAMINE\VITAMIN A\VITAMIN D
  9. ADDERALL [Concomitant]
     Active Substance: AMPHETAMINE ASPARTATE\AMPHETAMINE SULFATE\DEXTROAMPHETAMINE SACCHARATE\DEXTROAMPHETAMINE SULFATE

REACTIONS (10)
  - Drug ineffective [None]
  - Irritability [None]
  - Frustration tolerance decreased [None]
  - Confusional state [None]
  - Product solubility abnormal [None]
  - Migraine [None]
  - Fatigue [None]
  - Incorrect dose administered [None]
  - Headache [None]
  - Product substitution issue [None]

NARRATIVE: CASE EVENT DATE: 20190521
